FAERS Safety Report 12667998 (Version 1)
Quarter: 2016Q3

REPORT INFORMATION
  Report Type: Report from Study
  Country: US (occurrence: US)
  Receive Date: 20160819
  Receipt Date: 20160819
  Transmission Date: 20161109
  Serious: Yes (Other)
  Sender: FDA-Public Use
  Company Number: US-SAOL THERAPEUTICS-2016SAO00416

PATIENT
  Age: 72 Year
  Sex: Male

DRUGS (4)
  1. LIORESAL [Suspect]
     Active Substance: BACLOFEN
     Indication: MUSCLE SPASTICITY
     Dosage: 313.55 ?G, \DAY
     Route: 037
  2. COUMADIN [Suspect]
     Active Substance: WARFARIN SODIUM
  3. FENTANYL. [Suspect]
     Active Substance: FENTANYL
     Indication: MUSCLE SPASTICITY
     Dosage: 17.419 ?G, \DAY
     Route: 037
  4. LIORESAL [Suspect]
     Active Substance: BACLOFEN
     Indication: SPINAL PAIN

REACTIONS (2)
  - Incision site vesicles [Recovered/Resolved]
  - Medical device site haematoma [Recovered/Resolved]

NARRATIVE: CASE EVENT DATE: 20140822
